FAERS Safety Report 14799091 (Version 1)
Quarter: 2018Q2

REPORT INFORMATION
  Report Type: Spontaneous
  Country: DE (occurrence: DE)
  Receive Date: 20180424
  Receipt Date: 20180424
  Transmission Date: 20180711
  Serious: Yes (Other)
  Sender: FDA-Public Use
  Company Number: GXKR2007DE01829

PATIENT
  Age: 7 Year
  Sex: Female

DRUGS (3)
  1. ETHOSUXIMIDE. [Concomitant]
     Active Substance: ETHOSUXIMIDE
     Indication: PRODUCT USED FOR UNKNOWN INDICATION
     Dosage: UNK
     Route: 065
  2. VIGABATRIN. [Concomitant]
     Active Substance: VIGABATRIN
     Indication: PRODUCT USED FOR UNKNOWN INDICATION
     Dosage: UNK
     Route: 065
  3. VALPROIC ACID. [Suspect]
     Active Substance: VALPROIC ACID
     Indication: HYDROCEPHALUS
     Route: 065

REACTIONS (4)
  - Transaminases increased [Recovered/Resolved]
  - Liver disorder [Recovered/Resolved]
  - Renal failure [Recovered/Resolved]
  - Hepatocellular injury [Recovered/Resolved]
